FAERS Safety Report 21885239 (Version 1)
Quarter: 2023Q1

REPORT INFORMATION
  Report Type: Spontaneous
  Country: US (occurrence: None)
  Receive Date: 20230118
  Receipt Date: 20230118
  Transmission Date: 20230418
  Serious: Yes (Death)
  Sender: FDA-Public Use
  Company Number: None

PATIENT
  Age: 78 Year
  Sex: Male

DRUGS (2)
  1. CAPECITABINE [Suspect]
     Active Substance: CAPECITABINE
     Dosage: FREQUENCY : TWICE A DAY;?
     Route: 048
     Dates: start: 20220316, end: 20230114
  2. CAPECITABINE [Concomitant]
     Active Substance: CAPECITABINE
     Dates: start: 20220316, end: 20230114

REACTIONS (1)
  - Death [None]

NARRATIVE: CASE EVENT DATE: 20230114
